FAERS Safety Report 8530534-X (Version None)
Quarter: 2012Q3

REPORT INFORMATION
  Report Type: 
  Country: None (occurrence: None)
  Receive Date: 20120723
  Receipt Date: 20120718
  Transmission Date: 20120928
  Serious: Yes (Life-Threatening, Hospitalization, Disabling, Other)
  Sender: FDA-Public Use
  Company Number: CA-CELGENEUS-028-21880-12053300

PATIENT
  Sex: Female

DRUGS (9)
  1. STEROIDS [Concomitant]
     Route: 065
  2. REVLIMID [Suspect]
     Dosage: 15 MILLIGRAM
     Route: 048
     Dates: start: 20120424, end: 20120501
  3. METFORMIN HYDROCHLORIDE [Concomitant]
     Route: 065
  4. DIGOXIN [Interacting]
     Dosage: .25 MILLIGRAM
     Route: 065
  5. REVLIMID [Interacting]
     Dosage: 15 MILLIGRAM
     Route: 048
     Dates: start: 20120503, end: 20120507
  6. INSULIN [Concomitant]
     Route: 065
  7. WARFARIN SODIUM [Concomitant]
     Route: 065
  8. WARFARIN SODIUM [Concomitant]
     Dosage: 13 MILLIGRAM
     Route: 065
     Dates: start: 20120514
  9. METOPROLOL SUCCINATE [Concomitant]
     Route: 065

REACTIONS (9)
  - HYPERKALAEMIA [None]
  - DRUG INTERACTION [None]
  - RENAL FAILURE [None]
  - TOXICITY TO VARIOUS AGENTS [None]
  - PARAESTHESIA [None]
  - CARDIAC ARREST [None]
  - ANAEMIA [None]
  - PRURITUS [None]
  - DRY SKIN [None]
